FAERS Safety Report 7483778-2 (Version None)
Quarter: 2011Q2

REPORT INFORMATION
  Report Type: 
  Country: None (occurrence: None)
  Receive Date: 20110517
  Receipt Date: 20110511
  Transmission Date: 20111010
  Serious: Yes (Death, Other)
  Sender: FDA-Public Use
  Company Number: PHHY2010MX54886

PATIENT
  Age: 83 Year
  Sex: Male

DRUGS (3)
  1. ZOMETA [Suspect]
     Indication: HYPERCALCAEMIA
     Dosage: 4 MG/ 5 ML, QMO
     Dates: start: 20090601, end: 20091101
  2. ZOMETA [Suspect]
     Indication: PROSTATE CANCER
  3. CHEMOTHERAPEUTICS NOS [Concomitant]
     Dosage: UNK
     Dates: start: 20070101

REACTIONS (13)
  - DISEASE PROGRESSION [None]
  - PERIPHERAL COLDNESS [None]
  - METASTASES TO CENTRAL NERVOUS SYSTEM [None]
  - PYREXIA [None]
  - RESPIRATORY DISORDER [None]
  - NEOPLASM MALIGNANT [None]
  - HEART RATE DECREASED [None]
  - MUSCLE SPASMS [None]
  - TACHYCARDIA [None]
  - ENCEPHALOPATHY [None]
  - PLATELET COUNT DECREASED [None]
  - PALLOR [None]
  - PRODUCTIVE COUGH [None]
